FAERS Safety Report 15432681 (Version 1)
Quarter: 2018Q3

REPORT INFORMATION
  Report Type: Spontaneous
  Country: CA (occurrence: CA)
  Receive Date: 20180927
  Receipt Date: 20180927
  Transmission Date: 20181010
  Serious: Yes (Hospitalization, Other)
  Sender: FDA-Public Use
  Company Number: CA-AMGEN-CANSP2018131410

PATIENT
  Age: 64 Year
  Sex: Female

DRUGS (6)
  1. MAVIK [Concomitant]
     Active Substance: TRANDOLAPRIL
     Dosage: CAPSULE
  2. REPATHA [Suspect]
     Active Substance: EVOLOCUMAB
     Indication: TYPE IIA HYPERLIPIDAEMIA
     Dosage: 140 MG, Q2WK
     Route: 058
  3. TOPAMAX [Concomitant]
     Active Substance: TOPIRAMATE
  4. PANTOLOC [Concomitant]
     Active Substance: PANTOPRAZOLE SODIUM
  5. GABAPENTIN. [Concomitant]
     Active Substance: GABAPENTIN
  6. TYLENOL [Concomitant]
     Active Substance: ACETAMINOPHEN

REACTIONS (9)
  - Immune system disorder [Recovering/Resolving]
  - Urticaria [Recovering/Resolving]
  - Herpes virus infection [Recovering/Resolving]
  - Psoriasis [Recovering/Resolving]
  - Food poisoning [Recovering/Resolving]
  - Cystitis [Recovering/Resolving]
  - Fungal infection [Recovering/Resolving]
  - Eye infection [Recovering/Resolving]
  - Wound secretion [Recovering/Resolving]
